FAERS Safety Report 19973115 (Version 2)
Quarter: 2021Q4

REPORT INFORMATION
  Report Type: Spontaneous
  Country: US (occurrence: US)
  Receive Date: 20211020
  Receipt Date: 20211022
  Transmission Date: 20220303
  Serious: No
  Sender: FDA-Public Use
  Company Number: US-JNJFOC-20211023467

PATIENT
  Age: 47 Year
  Sex: Female

DRUGS (10)
  1. TYLENOL [Suspect]
     Active Substance: ACETAMINOPHEN
     Indication: Flushing
     Route: 065
  2. TYLENOL [Suspect]
     Active Substance: ACETAMINOPHEN
     Indication: Pruritus
  3. TYLENOL [Suspect]
     Active Substance: ACETAMINOPHEN
     Indication: Urticaria
  4. PEPCID [Suspect]
     Active Substance: FAMOTIDINE
     Indication: Flushing
     Route: 065
  5. PEPCID [Suspect]
     Active Substance: FAMOTIDINE
     Indication: Pruritus
  6. PEPCID [Suspect]
     Active Substance: FAMOTIDINE
     Indication: Urticaria
  7. COVID-19 VACCINE [Concomitant]
     Indication: Immunisation
     Route: 065
  8. BENADRYL [Concomitant]
     Active Substance: DIPHENHYDRAMINE HYDROCHLORIDE
     Indication: Pruritus
     Route: 065
  9. BENADRYL [Concomitant]
     Active Substance: DIPHENHYDRAMINE HYDROCHLORIDE
     Indication: Urticaria
  10. ZYRTEC [Concomitant]
     Active Substance: CETIRIZINE HYDROCHLORIDE
     Indication: Pruritus
     Route: 065

REACTIONS (1)
  - Product use in unapproved indication [Unknown]
